FAERS Safety Report 7340587-2 (Version None)
Quarter: 2011Q1

REPORT INFORMATION
  Report Type: 
  Country: None (occurrence: None)
  Receive Date: 20110309
  Receipt Date: 20110301
  Transmission Date: 20110831
  Serious: Yes (Disabling)
  Sender: FDA-Public Use
  Company Number: PHHY2011FR17770

PATIENT
  Age: 63 Year
  Sex: Female

DRUGS (2)
  1. FEMARA [Suspect]
     Indication: BREAST CANCER
     Dosage: 01 DF, QD
     Route: 048
     Dates: start: 20050101, end: 20110125
  2. KARDEGIC [Concomitant]
     Dosage: UNK

REACTIONS (5)
  - AORTIC STENOSIS [None]
  - SKIN NECROSIS [None]
  - AORTIC THROMBOSIS [None]
  - PELVIC VENOUS THROMBOSIS [None]
  - ISCHAEMIA [None]
